FAERS Safety Report 18213887 (Version 1)
Quarter: 2020Q3

REPORT INFORMATION
  Report Type: Spontaneous
  Country: AE (occurrence: AE)
  Receive Date: 20200831
  Receipt Date: 20200831
  Transmission Date: 20201103
  Serious: Yes (Other)
  Sender: FDA-Public Use
  Company Number: AE-ASTRAZENECA-2020SF08979

PATIENT
  Age: 17048 Day
  Sex: Female

DRUGS (1)
  1. LYNPARZA [Suspect]
     Active Substance: OLAPARIB
     Indication: OVARIAN CANCER
     Route: 048
     Dates: start: 20200319

REACTIONS (1)
  - Tumour marker increased [Unknown]

NARRATIVE: CASE EVENT DATE: 20200818
